FAERS Safety Report 7501555-0 (Version None)
Quarter: 2011Q2

REPORT INFORMATION
  Report Type: 
  Country: None (occurrence: None)
  Receive Date: 20110524
  Receipt Date: 20110517
  Transmission Date: 20111010
  Serious: Yes (Hospitalization)
  Sender: FDA-Public Use
  Company Number: FR-AMGEN-KDC439751

PATIENT
  Age: 77 Year
  Sex: Female

DRUGS (4)
  1. TANGANIL [Concomitant]
     Dosage: 50 ML, Q8H
     Route: 048
     Dates: start: 20100225
  2. OROCAL D3 [Concomitant]
     Dosage: UNK UNK, BID
     Route: 048
     Dates: start: 20090210
  3. DENOSUMAB [Suspect]
     Indication: OSTEOPOROSIS POSTMENOPAUSAL
     Dosage: 60 MG, Q6MO
     Route: 058
     Dates: start: 20041209
  4. UNIFLUID [Concomitant]
     Dosage: UNK UNK, QD

REACTIONS (3)
  - PULMONARY OEDEMA [None]
  - HAEMORRHAGE [None]
  - PROCTOCOLITIS [None]
